FAERS Safety Report 12485488 (Version 1)
Quarter: 2016Q2

REPORT INFORMATION
  Report Type: Spontaneous
  Country: US (occurrence: US)
  Receive Date: 20160621
  Receipt Date: 20160621
  Transmission Date: 20160815
  Serious: No
  Sender: FDA-Public Use
  Company Number: US-SA-2016SA045851

PATIENT
  Age: 6 Year
  Sex: Male
  Weight: 18.14 kg

DRUGS (7)
  1. NORMAL SALINE [Concomitant]
     Active Substance: SODIUM CHLORIDE
     Indication: FLUSHING
     Dosage: 0.9 % IV AS DIRECTED
     Route: 042
     Dates: start: 20151102
  2. CEREZYME [Suspect]
     Active Substance: IMIGLUCERASE
     Indication: LIPIDOSIS
     Dosage: DOSE:66.29 UNIT(S)/KILOGRAM BODYWEIGHT
     Route: 041
  3. ALBUTEROL SULFATE. [Concomitant]
     Active Substance: ALBUTEROL SULFATE
     Route: 055
     Dates: start: 20160215
  4. CEREZYME [Suspect]
     Active Substance: IMIGLUCERASE
     Indication: GAUCHER^S DISEASE
     Dosage: DOSE:66.29 UNIT(S)/KILOGRAM BODYWEIGHT
     Route: 041
  5. CEREZYME [Suspect]
     Active Substance: IMIGLUCERASE
     Indication: GAUCHER^S DISEASE
     Dosage: DOSE:66.29 UNIT(S)/KILOGRAM BODYWEIGHT
     Route: 041
  6. EPIPEN [Concomitant]
     Active Substance: EPINEPHRINE
     Indication: ANAPHYLACTIC REACTION
     Route: 030
     Dates: start: 20151102
  7. CEREZYME [Suspect]
     Active Substance: IMIGLUCERASE
     Indication: LIPIDOSIS
     Dosage: DOSE:66.29 UNIT(S)/KILOGRAM BODYWEIGHT
     Route: 041

REACTIONS (1)
  - Vomiting [Not Recovered/Not Resolved]
